FAERS Safety Report 21455152 (Version 2)
Quarter: 2022Q4

REPORT INFORMATION
  Report Type: Spontaneous
  Country: JP (occurrence: JP)
  Receive Date: 20221014
  Receipt Date: 20221220
  Transmission Date: 20230112
  Serious: Yes (Hospitalization)
  Sender: FDA-Public Use
  Company Number: JP-SA-2022SA416168

PATIENT
  Age: 30 Year
  Sex: Female
  Weight: 50 kg

DRUGS (4)
  1. DUPIXENT [Suspect]
     Active Substance: DUPILUMAB
     Indication: Dermatitis atopic
     Dosage: DAILY DOSE: 600 MG
     Route: 058
     Dates: start: 202209, end: 202209
  2. DELGOCITINIB [Concomitant]
     Active Substance: DELGOCITINIB
     Indication: Dermatitis atopic
     Dosage: CORECTIM/HIRUDOID COMBINATION, DAILY DOSE: 1W100G
     Route: 065
     Dates: start: 2022, end: 202209
  3. GLYCOSAMINOGLYCANS [Concomitant]
     Active Substance: GLYCOSAMINOGLYCANS
     Indication: Dermatitis atopic
     Dosage: CORECTIM/HIRUDOID COMBINATION, DAILY DOSE: 1W100G
     Route: 065
     Dates: start: 2022, end: 202209
  4. CYCLOSPORINE [Concomitant]
     Active Substance: CYCLOSPORINE
     Indication: Dermatitis atopic
     Dosage: DAILY DOSE: 2 MG/KG
     Route: 065
     Dates: start: 2022, end: 202209

REACTIONS (1)
  - Hand-foot-and-mouth disease [Recovering/Resolving]

NARRATIVE: CASE EVENT DATE: 20220901
